FAERS Safety Report 8152705-7 (Version None)
Quarter: 2012Q1

REPORT INFORMATION
  Report Type: 
  Country: None (occurrence: None)
  Receive Date: 20120221
  Receipt Date: 20120208
  Transmission Date: 20120608
  Serious: Yes (Other)
  Sender: FDA-Public Use
  Company Number: CA-JNJFOC-20120205656

PATIENT
  Sex: Male

DRUGS (5)
  1. METHOTREXATE [Concomitant]
     Route: 065
  2. ASACOL [Concomitant]
     Route: 065
  3. PREDNISONE [Concomitant]
     Route: 065
  4. REMICADE [Suspect]
     Indication: COLITIS ULCERATIVE
     Route: 042
     Dates: start: 20111128
  5. REMICADE [Suspect]
     Dosage: 3RD INFUSION
     Route: 042
     Dates: start: 20120110

REACTIONS (2)
  - WEIGHT INCREASED [None]
  - THERAPY RESPONDER [None]
